FAERS Safety Report 4654444-3 (Version None)
Quarter: 2005Q2

REPORT INFORMATION
  Report Type: 
  Country: None (occurrence: None)
  Receive Date: 20050506
  Receipt Date: 20050419
  Transmission Date: 20051028
  Serious: Yes (Other)
  Sender: FDA-Public Use
  Company Number: JP-BOEHRINGER INGELHEIM PHARMACEUTICALS, INC.-2005-BP-07008NB

PATIENT
  Age: 61 Year
  Sex: Male

DRUGS (4)
  1. MICARDIS [Suspect]
     Indication: HYPERTENSION
     Route: 048
     Dates: start: 20050327, end: 20050406
  2. NU-LOTAN [Concomitant]
     Route: 048
     Dates: start: 20050124, end: 20050327
  3. NICOMOL [Concomitant]
     Route: 048
     Dates: start: 20050124
  4. SELPHAMIN (NICERGOLINE) [Concomitant]
     Route: 048
     Dates: start: 20050124

REACTIONS (3)
  - BACK PAIN [None]
  - NECK PAIN [None]
  - SEDATION [None]
